FAERS Safety Report 5882121-X (Version None)
Quarter: 2008Q3

REPORT INFORMATION
  Report Type: 
  Country: None (occurrence: None)
  Receive Date: 20080912
  Receipt Date: 20080811
  Transmission Date: 20090109
  Serious: Yes (Hospitalization)
  Sender: FDA-Public Use
  Company Number: US-ABBOTT-08P-163-0465608-00

PATIENT
  Sex: Female
  Weight: 124 kg

DRUGS (11)
  1. HUMIRA [Suspect]
     Indication: RHEUMATOID ARTHRITIS
     Route: 058
     Dates: start: 20050101
  2. HUMIRA [Suspect]
     Route: 050
     Dates: start: 20080718
  3. VICODIN [Concomitant]
     Indication: PAIN
     Route: 048
     Dates: start: 20080722
  4. ATENOLOL [Concomitant]
     Indication: HYPERTENSION
     Dosage: 1 1/2 TAB
     Route: 048
  5. PREDNISONE TAB [Concomitant]
     Indication: RHEUMATOID ARTHRITIS
     Route: 048
  6. FOLIC ACID [Concomitant]
     Indication: RHEUMATOID ARTHRITIS
     Route: 048
  7. LOTREL [Concomitant]
     Indication: HYPERTENSION
     Route: 048
     Dates: start: 20050101
  8. ISOSORBIDE [Concomitant]
     Indication: HYPERTENSION
     Route: 048
     Dates: start: 20070101
  9. FUROSEMIDE [Concomitant]
     Indication: FLUID RETENTION
     Route: 048
  10. CLINDAMYCIN HCL [Concomitant]
     Indication: INFECTION PROPHYLAXIS
     Dates: start: 20060101
  11. METHOTREXATE [Concomitant]
     Indication: RHEUMATOID ARTHRITIS
     Route: 048
     Dates: start: 20040801

REACTIONS (4)
  - INJECTION SITE PAIN [None]
  - OEDEMA PERIPHERAL [None]
  - PNEUMONIA [None]
  - RHEUMATOID ARTHRITIS [None]
